FAERS Safety Report 5747695-8 (Version None)
Quarter: 2008Q2

REPORT INFORMATION
  Report Type: 
  Country: None (occurrence: None)
  Receive Date: 20080523
  Receipt Date: 20080519
  Transmission Date: 20081010
  Serious: Yes (Hospitalization)
  Sender: FDA-Public Use
  Company Number: US-ABBOTT-08P-163-0452521-00

PATIENT
  Sex: Female
  Weight: 72.186 kg

DRUGS (20)
  1. HUMIRA [Suspect]
     Indication: RHEUMATOID ARTHRITIS
     Route: 058
     Dates: start: 20060101
  2. HUMIRA [Suspect]
     Route: 058
     Dates: start: 20080501
  3. PREDNISONE TAB [Suspect]
     Indication: RHEUMATOID ARTHRITIS
     Dosage: 10 MG IN THE MORNING 9 MG IN THE AFTERNOON
     Route: 048
     Dates: start: 20080514
  4. FOLIC ACID [Concomitant]
     Indication: VITAMIN SUPPLEMENTATION
     Route: 048
     Dates: start: 20050212
  5. FUROSEMIDE [Concomitant]
     Indication: CARDIAC FAILURE
     Route: 048
     Dates: start: 20050921
  6. SULFASALAZINE [Concomitant]
     Indication: RHEUMATOID ARTHRITIS
     Route: 048
     Dates: start: 20041201
  7. GLIPIZIDE [Concomitant]
     Indication: DIABETES MELLITUS
     Route: 048
     Dates: start: 20050701
  8. METFORMIN HCL [Concomitant]
     Indication: DIABETES MELLITUS
     Route: 048
     Dates: start: 20050701
  9. CARVEDILOL [Concomitant]
     Indication: HYPERTENSION
     Route: 048
     Dates: start: 20050501
  10. DIGOXIN [Concomitant]
     Indication: CARDIAC FAILURE
     Route: 048
     Dates: start: 20050701
  11. LISINOPRIL [Concomitant]
     Indication: HYPERTENSION
     Route: 048
     Dates: start: 20040701
  12. ISOSORBIDE DINITRATE [Concomitant]
     Indication: CARDIAC FAILURE
     Route: 048
     Dates: end: 20070801
  13. ACETYLSALICYLIC ACID SRT [Concomitant]
     Indication: CARDIOVASCULAR EVENT PROPHYLAXIS
     Route: 048
     Dates: start: 20040901
  14. MORPHINE CONTIN [Concomitant]
     Indication: PAIN
     Dosage: 5 MG TABS, 2 TABS 3 X DAILY
     Route: 048
     Dates: start: 20050501
  15. ALPRAZOLAM [Concomitant]
     Indication: PANIC ATTACK
     Route: 048
     Dates: start: 20040401
  16. METHOTREXATE [Concomitant]
     Indication: RHEUMATOID ARTHRITIS
     Route: 048
     Dates: start: 20050212
  17. LOVASTATIN [Concomitant]
     Indication: BLOOD CHOLESTEROL INCREASED
     Route: 048
     Dates: start: 20050801
  18. VERGOCALCIFEROL [Concomitant]
     Indication: VITAMIN SUPPLEMENTATION
     Route: 048
     Dates: start: 20071001
  19. FAMOTIDINE [Concomitant]
     Indication: GASTROOESOPHAGEAL REFLUX DISEASE
     Route: 048
     Dates: start: 20041101
  20. GLYCERYL TRINITRATE [Concomitant]
     Indication: CARDIOVASCULAR EVENT PROPHYLAXIS
     Route: 060
     Dates: start: 20041101

REACTIONS (10)
  - DIARRHOEA [None]
  - FULL BLOOD COUNT ABNORMAL [None]
  - GLYCOSYLATED HAEMOGLOBIN INCREASED [None]
  - HEADACHE [None]
  - INFLUENZA LIKE ILLNESS [None]
  - LABORATORY TEST ABNORMAL [None]
  - PLATELET COUNT ABNORMAL [None]
  - RED BLOOD CELL SEDIMENTATION RATE ABNORMAL [None]
  - URINARY TRACT INFECTION [None]
  - VOMITING [None]
